FAERS Safety Report 6602342-8 (Version None)
Quarter: 2010Q1

REPORT INFORMATION
  Report Type: 
  Country: None (occurrence: None)
  Receive Date: 20100225
  Receipt Date: 20100216
  Transmission Date: 20100710
  Serious: Yes (Other)
  Sender: FDA-Public Use
  Company Number: A0845778A

PATIENT
  Sex: Female

DRUGS (3)
  1. PROMACTA [Suspect]
     Dosage: 50MG PER DAY
     Dates: start: 20090522, end: 20091208
  2. PEG-INTRON [Suspect]
  3. RIBAVIRIN [Suspect]

REACTIONS (3)
  - ADVERSE DRUG REACTION [None]
  - HAEMOGLOBIN DECREASED [None]
  - LIVER FUNCTION TEST ABNORMAL [None]
